FAERS Safety Report 8125128-4 (Version None)
Quarter: 2012Q1

REPORT INFORMATION
  Report Type: 
  Country: None (occurrence: None)
  Receive Date: 20120209
  Receipt Date: 20120207
  Transmission Date: 20120608
  Serious: Yes (Other)
  Sender: FDA-Public Use
  Company Number: US-ROCHE-792727

PATIENT
  Sex: Male
  Weight: 79.45 kg

DRUGS (1)
  1. ACCUTANE [Suspect]
     Indication: ACNE
     Dates: start: 19890101, end: 19901231

REACTIONS (8)
  - INFLAMMATORY BOWEL DISEASE [None]
  - PANCREATIC PSEUDOCYST [None]
  - PANCREATITIS [None]
  - SUICIDAL IDEATION [None]
  - DEPRESSION [None]
  - OBSTRUCTION GASTRIC [None]
  - INTESTINAL OBSTRUCTION [None]
  - SUICIDE ATTEMPT [None]
